FAERS Safety Report 23317980 (Version 2)
Quarter: 2023Q4

REPORT INFORMATION
  Report Type: Report from Study
  Country: US (occurrence: US)
  Receive Date: 20231219
  Receipt Date: 20231221
  Transmission Date: 20240109
  Serious: Yes (Other)
  Sender: FDA-Public Use
  Company Number: US-009507513-1710USA005662

PATIENT
  Sex: Female

DRUGS (17)
  1. JANUVIA [Suspect]
     Active Substance: SITAGLIPTIN PHOSPHATE
     Indication: Type 2 diabetes mellitus
     Dosage: 100 MILLIGRAM, QD
     Route: 048
  2. METFORMIN [Suspect]
     Active Substance: METFORMIN HYDROCHLORIDE
     Indication: Blood glucose abnormal
     Dosage: UNK
  3. METFORMIN [Suspect]
     Active Substance: METFORMIN HYDROCHLORIDE
     Indication: Blood cholesterol
  4. LYRICA [Suspect]
     Active Substance: PREGABALIN
     Indication: Neuralgia
     Dosage: 75 MILLIGRAM, PRN
  5. AMOXICILLIN\CLAVULANATE POTASSIUM [Suspect]
     Active Substance: AMOXICILLIN\CLAVULANATE POTASSIUM
     Indication: Bronchitis
     Dosage: 875 MILLIGRAM, BID
     Dates: start: 20231118
  6. CORTISONE [Suspect]
     Active Substance: CORTISONE
     Indication: Bronchitis
     Dosage: UNK
     Dates: start: 20231118
  7. JARDIANCE [Suspect]
     Active Substance: EMPAGLIFLOZIN
     Dosage: 10 MILLIGRAM, QD
     Dates: start: 202212
  8. BENTYL [Concomitant]
     Active Substance: DICYCLOMINE HYDROCHLORIDE
     Dosage: UNK
  9. ESTRADIOL [Concomitant]
     Active Substance: ESTRADIOL
     Dosage: 1 MILLIGRAM, QD
  10. ARMOUR THYROID [Concomitant]
     Active Substance: THYROID, PORCINE
     Dosage: UNK
  11. METFORMIN [Concomitant]
     Active Substance: METFORMIN HYDROCHLORIDE
     Dosage: 500 MILLIGRAM, BID
  12. LOSARTAN [Concomitant]
     Active Substance: LOSARTAN
     Dosage: 100 MILLIGRAM, QD
  13. ADVAIR HFA [Concomitant]
     Active Substance: FLUTICASONE PROPIONATE\SALMETEROL XINAFOATE
     Dosage: 100/50
  14. SINGULAIR [Concomitant]
     Active Substance: MONTELUKAST SODIUM
     Dosage: 10 MILLIGRAM
  15. CRESTOR [Concomitant]
     Active Substance: ROSUVASTATIN CALCIUM
     Dosage: 10 MILLIGRAM
  16. BACLOFEN [Concomitant]
     Active Substance: BACLOFEN
     Dosage: 10 MILLIGRAM, QAM
  17. LYRICA [Concomitant]
     Active Substance: PREGABALIN
     Indication: Pain
     Dosage: UNK, PRN

REACTIONS (9)
  - Diabetes mellitus inadequate control [Recovered/Resolved]
  - Blood glucose abnormal [Unknown]
  - Glycosylated haemoglobin abnormal [Recovered/Resolved]
  - Loss of therapeutic response [Unknown]
  - Illness [Recovered/Resolved]
  - Stress [Recovered/Resolved]
  - Blood glucose increased [Recovered/Resolved]
  - Bronchitis [Unknown]
  - Diarrhoea [Unknown]

NARRATIVE: CASE EVENT DATE: 20221201
